FAERS Safety Report 5078722-1 (Version None)
Quarter: 2006Q3

REPORT INFORMATION
  Report Type: 
  Country: None (occurrence: None)
  Receive Date: 20060809
  Receipt Date: 20060809
  Transmission Date: 20061208
  Serious: Yes (Other)
  Sender: FDA-Public Use
  Company Number: None

PATIENT
  Age: 24 Year
  Sex: Female
  Weight: 63.5036 kg

DRUGS (4)
  1. DEPO-PROVERA [Suspect]
     Indication: CONTRACEPTION
     Dosage: 150 MG IM Q3 MO
     Route: 030
     Dates: start: 20060724
  2. KEPPRA [Concomitant]
  3. TOPAMAX [Concomitant]
  4. TEGRETOL [Concomitant]

REACTIONS (5)
  - INDURATION [None]
  - INJECTION SITE PAIN [None]
  - PAIN [None]
  - PAIN IN EXTREMITY [None]
  - SWELLING [None]
